FAERS Safety Report 9259467 (Version 1)
Quarter: 2013Q2

REPORT INFORMATION
  Report Type: Spontaneous
  Country: US (occurrence: US)
  Receive Date: 20130428
  Receipt Date: 20130428
  Transmission Date: 20140414
  Serious: Yes (Other)
  Sender: FDA-Public Use
  Company Number: US-TEVA-400527USA

PATIENT
  Age: 61 Year
  Sex: Female

DRUGS (4)
  1. CARBOPLATIN [Suspect]
     Indication: OVARIAN CANCER RECURRENT
     Route: 065
  2. DOXORUBICIN LIPOSOMAL [Suspect]
     Indication: OVARIAN CANCER RECURRENT
     Route: 065
     Dates: end: 200902
  3. GEMCITABINE [Suspect]
     Indication: OVARIAN CANCER RECURRENT
     Route: 065
  4. PACLITAXEL [Concomitant]
     Indication: OVARIAN CANCER RECURRENT
     Route: 065

REACTIONS (2)
  - Renal failure chronic [Recovering/Resolving]
  - Thrombotic microangiopathy [Recovering/Resolving]
